FAERS Safety Report 16264004 (Version 1)
Quarter: 2019Q2

REPORT INFORMATION
  Report Type: Report from Study
  Country: US (occurrence: US)
  Receive Date: 20190502
  Receipt Date: 20190502
  Transmission Date: 20190711
  Serious: Yes (Other)
  Sender: FDA-Public Use
  Company Number: US-BAYER-2019-084166

PATIENT
  Age: 69 Year
  Sex: Male

DRUGS (7)
  1. TYLENOL [Concomitant]
     Active Substance: ACETAMINOPHEN
  2. STIVARGA [Suspect]
     Active Substance: REGORAFENIB
     Indication: COLORECTAL CANCER
     Dosage: 4 DF, QD (DAY 1-21 OF 28 DAY CYCLE)
     Route: 048
     Dates: start: 20190312
  3. PROCHLORPERAZINE. [Concomitant]
     Active Substance: PROCHLORPERAZINE
  4. OXYCODONE [Concomitant]
     Active Substance: OXYCODONE
  5. TRAMADOL. [Concomitant]
     Active Substance: TRAMADOL
  6. LOMOTIL [LOPERAMIDE HYDROCHLORIDE] [Concomitant]
  7. ONDANSETRON [Concomitant]
     Active Substance: ONDANSETRON

REACTIONS (3)
  - Neuropathy peripheral [Not Recovered/Not Resolved]
  - Fatigue [Not Recovered/Not Resolved]
  - Inappropriate schedule of product administration [Recovered/Resolved]
